FAERS Safety Report 8964373 (Version 1)
Quarter: 2012Q4

REPORT INFORMATION
  Report Type: Report from Study
  Country: CA (occurrence: CA)
  Receive Date: 20121213
  Receipt Date: 20121213
  Transmission Date: 20130627
  Serious: Yes (Hospitalization)
  Sender: FDA-Public Use
  Company Number: CA-ROCHE-GNE219285

PATIENT
  Age: 12 Year
  Sex: Male
  Weight: 35.05 kg

DRUGS (4)
  1. OMALIZUMAB [Suspect]
     Indication: ASTHMA
     Route: 058
     Dates: start: 20051020
  2. SALBUTAMOL [Concomitant]
  3. FLUTICASONE [Concomitant]
  4. SALMETEROL XINAFOATE INHALER [Concomitant]

REACTIONS (10)
  - Asthma [Recovered/Resolved]
  - Rash [Unknown]
  - Chest pain [Unknown]
  - Dysuria [Unknown]
  - Lethargy [Unknown]
  - Pain in extremity [Unknown]
  - Dry skin [Unknown]
  - Pruritus [Unknown]
  - Eczema [Not Recovered/Not Resolved]
  - Depression [Unknown]
